FAERS Safety Report 10936568 (Version 1)
Quarter: 2015Q1

REPORT INFORMATION
  Report Type: Spontaneous
  Country: US (occurrence: None)
  Receive Date: 20150129
  Receipt Date: 20150129
  Transmission Date: 20150721
  Serious: No
  Sender: FDA-Public Use
  Company Number: A-NJ2014-106974

PATIENT
  Age: 67 Year
  Sex: Female

DRUGS (9)
  1. NORVASC [Concomitant]
     Active Substance: AMLODIPINE BESYLATE
  2. METOPROLOL SUCCINATE (METOPROLOL SUCCINATE) [Concomitant]
     Active Substance: METOPROLOL SUCCINATE
  3. ACETYLCYSTEIN (ACETYLCYSTEINE SODIUM) [Concomitant]
  4. DIOVAN [Concomitant]
     Active Substance: VALSARTAN
  5. OPSUMIT [Suspect]
     Active Substance: MACITENTAN
     Indication: PULMONARY HYPERTENSION
     Dosage: 10 MG, OD, ORAL
     Route: 048
     Dates: start: 20140925
  6. SPIRIVA (TIOTROPIUM BROMIDE) [Concomitant]
  7. LUNESTA [Concomitant]
     Active Substance: ESZOPICLONE
  8. REVATIO (SILDENAFIL CITRATE) [Concomitant]
  9. PROAIR (FLUTICASONE PROPIONATE) [Concomitant]
     Active Substance: FLUTICASONE PROPIONATE

REACTIONS (1)
  - Pyrexia [None]

NARRATIVE: CASE EVENT DATE: 20141001
